FAERS Safety Report 25778973 (Version 1)
Quarter: 2025Q3

REPORT INFORMATION
  Report Type: Spontaneous
  Country: CN (occurrence: CN)
  Receive Date: 20250909
  Receipt Date: 20250909
  Transmission Date: 20251020
  Serious: Yes (Hospitalization)
  Sender: BAYER HEALTHCARE PHARMACEUTICALS INC.
  Company Number: CN-BAYER-2025A116727

PATIENT
  Age: 27 Year
  Sex: Male
  Weight: 65 kg

DRUGS (2)
  1. GADOBUTROL [Suspect]
     Active Substance: GADOBUTROL
     Indication: Scan with contrast
     Route: 042
     Dates: start: 20250823, end: 20250823
  2. GADOBUTROL [Suspect]
     Active Substance: GADOBUTROL
     Indication: Spondyloarthropathy

REACTIONS (4)
  - Acute generalised exanthematous pustulosis [Recovering/Resolving]
  - Rash macular [Recovering/Resolving]
  - Blister [Recovering/Resolving]
  - Pain of skin [None]

NARRATIVE: CASE EVENT DATE: 20250823
